FAERS Safety Report 19057840 (Version 1)
Quarter: 2021Q1

REPORT INFORMATION
  Report Type: Spontaneous
  Country: CZ (occurrence: CZ)
  Receive Date: 20210324
  Receipt Date: 20210324
  Transmission Date: 20210420
  Serious: Yes (Death, Other)
  Sender: FDA-Public Use
  Company Number: CZ-TEVA-2021-CZ-1892596

PATIENT
  Age: 36 Year
  Sex: Male

DRUGS (2)
  1. CLONAZEPAM. [Suspect]
     Active Substance: CLONAZEPAM
     Dosage: APPROXIMATELY 290 NG/ML WITH METABOLITE
  2. BUPRENORFIN [Suspect]
     Active Substance: BUPRENORPHINE
     Dosage: 2,32 NG/ML

REACTIONS (3)
  - Pulmonary embolism [Fatal]
  - Toxicity to various agents [Unknown]
  - Drug abuse [Unknown]
